FAERS Safety Report 26067426 (Version 2)
Quarter: 2025Q4

REPORT INFORMATION
  Report Type: Spontaneous
  Country: CA (occurrence: CA)
  Receive Date: 20251120
  Receipt Date: 20251125
  Transmission Date: 20260118
  Serious: Yes (Other)
  Sender: TEVA
  Company Number: CA-TEVA-VS-3392890

PATIENT
  Age: 59 Year
  Sex: Male

DRUGS (2)
  1. CISPLATIN [Suspect]
     Active Substance: CISPLATIN
     Indication: Laryngeal squamous cell carcinoma
     Route: 065
     Dates: start: 2020
  2. NIVOLUMAB [Suspect]
     Active Substance: NIVOLUMAB
     Indication: Laryngeal squamous cell carcinoma
     Route: 065
     Dates: start: 202102, end: 202203

REACTIONS (7)
  - Drug ineffective [Unknown]
  - Flank pain [Unknown]
  - Gastrointestinal disorder [Recovering/Resolving]
  - Retroperitoneal fibrosis [Not Recovered/Not Resolved]
  - Aortitis [Recovering/Resolving]
  - Hydronephrosis [Unknown]
  - Ureteric obstruction [Unknown]

NARRATIVE: CASE EVENT DATE: 20200101
